FAERS Safety Report 6033060-5 (Version None)
Quarter: 2009Q1

REPORT INFORMATION
  Report Type: 
  Country: None (occurrence: None)
  Receive Date: 20090109
  Receipt Date: 20081230
  Transmission Date: 20090719
  Serious: Yes (Hospitalization)
  Sender: FDA-Public Use
  Company Number: IN-PFIZER INC-2008160396

PATIENT

DRUGS (3)
  1. DOXORUBICIN HCL [Suspect]
     Indication: BREAST CANCER
     Dosage: TDD: 96 MG, CYCLICAL
     Route: 042
     Dates: start: 20081119
  2. CYCLOPHOSPHAMIDE [Suspect]
     Indication: BREAST CANCER
     Dosage: TDD: 958 MG, CYCLICAL
     Route: 042
     Dates: start: 20081119
  3. FILGRASTIM [Suspect]
     Indication: NEUTROPENIA
     Dosage: 300 MICROGRAM 1 DAY
     Route: 058
     Dates: start: 20081203, end: 20081207

REACTIONS (2)
  - NEUTROPENIA [None]
  - PAIN [None]
